FAERS Safety Report 22516870 (Version 3)
Quarter: 2024Q3

REPORT INFORMATION
  Report Type: Spontaneous
  Country: CA (occurrence: CA)
  Receive Date: 20230603
  Receipt Date: 20240805
  Transmission Date: 20241017
  Serious: Yes (Death, Hospitalization, Other)
  Sender: AUROBINDO
  Company Number: CA-AUROBINDO-AUR-APL-2023-039116

PATIENT
  Age: 62 Year
  Sex: Female

DRUGS (6)
  1. AMOXICILLIN\CLAVULANIC ACID [Suspect]
     Active Substance: AMOXICILLIN\CLAVULANIC ACID
     Indication: Pneumonia
     Dosage: UNK, 1 EVERY 5 DAYS
     Route: 065
  2. AMOXICILLIN\CLAVULANIC ACID [Suspect]
     Active Substance: AMOXICILLIN\CLAVULANIC ACID
     Dosage: UNK UNK, TWO TIMES A DAY
     Route: 065
  3. REMICADE [Suspect]
     Active Substance: INFLIXIMAB
     Indication: Colitis ulcerative
     Dosage: 500 MILLIGRAM, 1 EVERY 6 WEEKS
     Route: 042
  4. ZITHROMAX [Suspect]
     Active Substance: AZITHROMYCIN DIHYDRATE
     Indication: Pneumonia
     Dosage: UNK, 1 EVERY 5 DAYS
     Route: 065
  5. ZITHROMAX [Suspect]
     Active Substance: AZITHROMYCIN DIHYDRATE
     Dosage: UNK, TWO TIMES A DAY
     Route: 065
  6. BUDESONIDE\FORMOTEROL [Concomitant]
     Active Substance: BUDESONIDE\FORMOTEROL
     Indication: Product used for unknown indication
     Dosage: UNK
     Route: 065

REACTIONS (7)
  - Death [Fatal]
  - Diarrhoea [Fatal]
  - Fungal infection [Fatal]
  - Interstitial lung disease [Fatal]
  - Loss of consciousness [Fatal]
  - Pneumonia [Fatal]
  - Off label use [Fatal]
